FAERS Safety Report 18533774 (Version 1)
Quarter: 2020Q4

REPORT INFORMATION
  Report Type: Spontaneous
  Country: US (occurrence: US)
  Receive Date: 20201121
  Receipt Date: 20201121
  Transmission Date: 20210114
  Serious: Yes (Disabling)
  Sender: FDA-Public Use
  Company Number: None

PATIENT
  Age: 78 Year
  Sex: Female
  Weight: 59.85 kg

DRUGS (1)
  1. MITCHUM CLINICAL SOFT SOLID [Suspect]
     Active Substance: ALUMINUM ZIRCONIUM TETRACHLOROHYDREX GLY
     Indication: PERSONAL HYGIENE
     Route: 061

REACTIONS (5)
  - Product complaint [None]
  - Dermatitis contact [None]
  - Product formulation issue [None]
  - Hypersensitivity [None]
  - Perfume sensitivity [None]

NARRATIVE: CASE EVENT DATE: 20201103
